FAERS Safety Report 25418635 (Version 1)
Quarter: 2025Q2

REPORT INFORMATION
  Report Type: Report from Study
  Country: NL (occurrence: NL)
  Receive Date: 20250610
  Receipt Date: 20250610
  Transmission Date: 20250716
  Serious: Yes (Other)
  Sender: VERITY PHARMACEUTICALS INC.
  Company Number: NL-VER-202500052

PATIENT
  Sex: Male

DRUGS (3)
  1. TRIPTORELIN PAMOATE [Suspect]
     Active Substance: TRIPTORELIN PAMOATE
     Indication: Prostate cancer
     Dosage: BATCH NUMBER: 011809
     Route: 030
     Dates: start: 20250227
  2. TRIPTORELIN PAMOATE [Suspect]
     Active Substance: TRIPTORELIN PAMOATE
     Indication: Prostate cancer
     Dosage: BATCH NUMBER: P06421
     Route: 030
     Dates: start: 20190723, end: 20190723
  3. TRIPTORELIN PAMOATE [Suspect]
     Active Substance: TRIPTORELIN PAMOATE
     Indication: Prostate cancer
     Dosage: BATCH NUMBER:A73805
     Route: 030
     Dates: start: 20240723, end: 20240723

REACTIONS (1)
  - Terminal state [Unknown]
